FAERS Safety Report 16171015 (Version 1)
Quarter: 2019Q2

REPORT INFORMATION
  Report Type: Spontaneous
  Country: GB (occurrence: GB)
  Receive Date: 20190408
  Receipt Date: 20190408
  Transmission Date: 20190711
  Serious: Yes (Hospitalization)
  Sender: FDA-Public Use
  Company Number: GB-MYLANLABS-2019M1031763

PATIENT
  Age: 35 Year
  Sex: Male

DRUGS (1)
  1. QUETIAPINE. [Suspect]
     Active Substance: QUETIAPINE
     Indication: PSYCHOTIC DISORDER
     Dosage: 300MG IN THE MORNING, 100MG IN THE EVENING
     Dates: start: 2011, end: 201806

REACTIONS (3)
  - Yellow skin [Recovering/Resolving]
  - Scleral discolouration [Recovering/Resolving]
  - Hepatic function abnormal [Recovering/Resolving]
